FAERS Safety Report 22282514 (Version 3)
Quarter: 2023Q2

REPORT INFORMATION
  Report Type: Report from Study
  Country: ES (occurrence: ES)
  Receive Date: 20230504
  Receipt Date: 20230530
  Transmission Date: 20230721
  Serious: Yes (Disabling)
  Sender: FDA-Public Use
  Company Number: ES-SA-SAC20230501001457

PATIENT
  Age: 76 Year
  Sex: Female

DRUGS (4)
  1. INSULIN GLARGINE [Suspect]
     Active Substance: INSULIN GLARGINE
     Dosage: UNK
     Route: 065
     Dates: start: 202303
  2. INSULIN GLARGINE [Suspect]
     Active Substance: INSULIN GLARGINE
     Dosage: 38 IU
  3. MORPHINE [Suspect]
     Active Substance: MORPHINE
     Dosage: UNK
  4. HYDROCORTISONE [Suspect]
     Active Substance: HYDROCORTISONE
     Indication: Back disorder
     Dosage: 3 DF
     Route: 065

REACTIONS (11)
  - Intervertebral disc protrusion [Not Recovered/Not Resolved]
  - Hypotension [Unknown]
  - Illness [Not Recovered/Not Resolved]
  - Back disorder [Not Recovered/Not Resolved]
  - Bone pain [Not Recovered/Not Resolved]
  - Confusional state [Not Recovered/Not Resolved]
  - Gait disturbance [Unknown]
  - Malaise [Unknown]
  - Injection site pain [Unknown]
  - Hyperglycaemia [Not Recovered/Not Resolved]
  - Palpitations [Not Recovered/Not Resolved]
